FAERS Safety Report 7284131-7 (Version None)
Quarter: 2011Q1

REPORT INFORMATION
  Report Type: 
  Country: None (occurrence: None)
  Receive Date: 20110209
  Receipt Date: 20110201
  Transmission Date: 20110831
  Serious: Yes (Other)
  Sender: FDA-Public Use
  Company Number: US-ELI_LILLY_AND_COMPANY-US201102000375

PATIENT
  Age: 59 Year
  Sex: Male

DRUGS (4)
  1. BYETTA [Suspect]
     Indication: TYPE 2 DIABETES MELLITUS
  2. APIDRA [Concomitant]
  3. SYMLIN [Concomitant]
  4. LANTUS [Concomitant]

REACTIONS (5)
  - RENAL IMPAIRMENT [None]
  - OFF LABEL USE [None]
  - SHOCK HYPOGLYCAEMIC [None]
  - NAUSEA [None]
  - DECREASED APPETITE [None]
